FAERS Safety Report 8973696 (Version 1)
Quarter: 2012Q4

REPORT INFORMATION
  Report Type: 
  Country: RU (occurrence: RU)
  Receive Date: 20121218
  Receipt Date: 20121218
  Transmission Date: 20130627
  Serious: Yes (Hospitalization)
  Sender: FDA-Public Use
  Company Number: RU-ALEXION PHARMACEUTICALS INC.-A201202406

PATIENT
  Age: 5 Year
  Sex: Male

DRUGS (4)
  1. SOLIRIS 300MG [Suspect]
     Indication: HAEMOLYTIC URAEMIC SYNDROME
     Dosage: 600 mg, single
     Route: 042
     Dates: start: 20120731, end: 20120731
  2. SOLIRIS 300MG [Suspect]
     Dosage: 300 mg, q2w
     Route: 042
     Dates: start: 20120807
  3. NIFECARD [Concomitant]
     Indication: HYPERTENSION
     Route: 048
  4. MOXONIDINE [Concomitant]
     Indication: HYPERTENSION
     Route: 048

REACTIONS (3)
  - Azotaemia [Not Recovered/Not Resolved]
  - Anaemia [Recovered/Resolved with Sequelae]
  - Inappropriate schedule of drug administration [Unknown]
